FAERS Safety Report 7825385-5 (Version None)
Quarter: 2011Q4

REPORT INFORMATION
  Report Type: 
  Country: None (occurrence: None)
  Receive Date: 20111019
  Receipt Date: 20111012
  Transmission Date: 20120403
  Serious: Yes (Other)
  Sender: FDA-Public Use
  Company Number: PHHY2011DK58001

PATIENT
  Sex: Female
  Weight: 67 kg

DRUGS (4)
  1. METHOTREXATE [Suspect]
     Dosage: UNK
     Route: 048
     Dates: start: 20040203, end: 20040203
  2. METHOTREXATE [Suspect]
     Indication: RHEUMATOID ARTHRITIS
     Dosage: 20 MG, QW
     Route: 058
     Dates: start: 20030101, end: 20100628
  3. HUMIRA [Suspect]
     Indication: RHEUMATOID ARTHRITIS
     Dates: start: 20040203, end: 20040817
  4. PREDNISOLONE [Suspect]
     Indication: RHEUMATOID ARTHRITIS
     Dosage: UNK

REACTIONS (2)
  - BREAST CANCER RECURRENT [None]
  - HEPATIC STEATOSIS [None]
